FAERS Safety Report 4485978-2 (Version None)
Quarter: 2004Q3

REPORT INFORMATION
  Report Type: 
  Country: None (occurrence: None)
  Receive Date: 20040921
  Receipt Date: 20040428
  Transmission Date: 20050211
  Serious: Yes (Hospitalization)
  Sender: FDA-Public Use
  Company Number: 163-20785-04040713 (0)

PATIENT
  Age: 81 Year
  Sex: Male

DRUGS (17)
  1. THALOMID [Suspect]
     Indication: MULTIPLE MYELOMA
     Dosage: 100 MG, Q.H.S., ORAL
     Route: 048
     Dates: start: 20040419, end: 20040427
  2. THALOMID [Suspect]
     Indication: MULTIPLE MYELOMA
     Dosage: 100 MG, Q.H.S., ORAL
     Route: 048
     Dates: start: 20040101
  3. DEXAMETHASONE [Suspect]
     Indication: MULTIPLE MYELOMA
     Dosage: 40 MG, D 1-4, 9-12, 17-20, ORAL
     Route: 048
     Dates: start: 20040419, end: 20040427
  4. DEXAMETHASONE [Suspect]
     Indication: MULTIPLE MYELOMA
     Dosage: 40 MG, D 1-4, 9-12, 17-20, ORAL
     Route: 048
     Dates: start: 20040101
  5. COUMADIN [Concomitant]
  6. SEPTRA DS [Concomitant]
  7. ACIPHEX [Concomitant]
  8. PROCRIT [Concomitant]
  9. TOPROL (METOPROLOL SUCCINATE) [Concomitant]
  10. ZOCOR [Concomitant]
  11. HYDROCHLOROTHIAZIDE [Concomitant]
  12. NIACIN (NICTONIC ACID) [Concomitant]
  13. SINGULAIR [Concomitant]
  14. XANAX [Concomitant]
  15. ADVAIR (SERETIDE MITE) [Concomitant]
  16. ZOMETA [Concomitant]
  17. LEVAQUIN [Concomitant]

REACTIONS (3)
  - DEEP VEIN THROMBOSIS [None]
  - DEHYDRATION [None]
  - HYPERGLYCAEMIA [None]
